FAERS Safety Report 24577078 (Version 4)
Quarter: 2024Q4

REPORT INFORMATION
  Report Type: Spontaneous
  Country: US (occurrence: US)
  Receive Date: 20241104
  Receipt Date: 20241226
  Transmission Date: 20250115
  Serious: No
  Sender: PFIZER
  Company Number: US-PFIZER INC-202400293236

PATIENT
  Age: 66 Year
  Sex: Female

DRUGS (1)
  1. METHOTREXATE SODIUM [Suspect]
     Active Substance: METHOTREXATE SODIUM
     Dosage: UNK

REACTIONS (5)
  - Drug hypersensitivity [Unknown]
  - Diarrhoea [Unknown]
  - Abdominal pain upper [Unknown]
  - Fatigue [Unknown]
  - Headache [Unknown]
